FAERS Safety Report 6665944-9 (Version None)
Quarter: 2010Q1

REPORT INFORMATION
  Report Type: 
  Country: None (occurrence: None)
  Receive Date: 20100326
  Receipt Date: 20090709
  Transmission Date: 20100710
  Serious: Yes (Other)
  Sender: FDA-Public Use
  Company Number: 2009SU0124FU2

PATIENT
  Age: 75 Year
  Sex: Female
  Weight: 56.6996 kg

DRUGS (5)
  1. SULAR [Suspect]
     Indication: HYPERTENSION
     Dosage: 34 MG, 40MG, DAILY
     Dates: start: 20090210, end: 20090218
  2. NISOLDIPINE [Suspect]
     Indication: HYPERTENSION
     Dates: start: 20090312
  3. SYNTHROID [Concomitant]
  4. ESTRACE [Concomitant]
  5. MAXZIDE [Concomitant]

REACTIONS (9)
  - ANXIETY [None]
  - ASTHENIA [None]
  - DIZZINESS POSTURAL [None]
  - DRUG INEFFECTIVE [None]
  - FATIGUE [None]
  - FEELING ABNORMAL [None]
  - HEADACHE [None]
  - PALPITATIONS [None]
  - TACHYCARDIA [None]
